FAERS Safety Report 4883144-X (Version None)
Quarter: 2006Q1

REPORT INFORMATION
  Report Type: 
  Country: None (occurrence: None)
  Receive Date: 20060117
  Receipt Date: 20060117
  Transmission Date: 20060701
  Serious: Yes (Hospitalization)
  Sender: FDA-Public Use
  Company Number: None

PATIENT
  Sex: Male
  Weight: 75.6 kg

DRUGS (1)
  1. VENLAFAXINE  37.5 [Suspect]
     Indication: DEPRESSION
     Dosage: 37.5   QD   PO
     Route: 048
     Dates: start: 20051101

REACTIONS (6)
  - BLOOD SODIUM DECREASED [None]
  - HYPOVOLAEMIA [None]
  - INAPPROPRIATE ANTIDIURETIC HORMONE SECRETION [None]
  - INCORRECT DOSE ADMINISTERED [None]
  - OVERDOSE [None]
  - TREATMENT NONCOMPLIANCE [None]
